FAERS Safety Report 9888822 (Version 2)
Quarter: 2014Q1

REPORT INFORMATION
  Report Type: Spontaneous
  Country: US (occurrence: US)
  Receive Date: 20140211
  Receipt Date: 20140211
  Transmission Date: 20141002
  Serious: Yes (Disabling, Other)
  Sender: FDA-Public Use
  Company Number: US-GE HEALTHCARE MEDICAL DIAGNOSTICS-OSCN-PR-0806S-0408

PATIENT
  Age: 58 Year
  Sex: Female

DRUGS (12)
  1. OMNISCAN [Suspect]
     Indication: PRODUCT USED FOR UNKNOWN INDICATION
     Route: 042
     Dates: start: 20000321, end: 20000321
  2. OMNISCAN [Suspect]
     Route: 042
     Dates: start: 20000414, end: 20000414
  3. OMNISCAN [Suspect]
     Route: 042
     Dates: start: 20000416, end: 20000416
  4. OMNISCAN [Suspect]
     Route: 042
     Dates: start: 20000427, end: 20000427
  5. OMNISCAN [Suspect]
     Route: 042
     Dates: start: 20000527, end: 20000527
  6. OMNISCAN [Suspect]
     Route: 042
     Dates: start: 20040226, end: 20040226
  7. OMNISCAN [Suspect]
     Route: 042
     Dates: start: 20040623, end: 20040623
  8. GADOLINIUM (UNSPECIFIED) [Suspect]
     Indication: PRODUCT USED FOR UNKNOWN INDICATION
     Route: 042
     Dates: start: 20000616, end: 20000616
  9. GADOLINIUM (UNSPECIFIED) [Suspect]
     Route: 042
     Dates: start: 20000623, end: 20000623
  10. GADOLINIUM (UNSPECIFIED) [Suspect]
     Route: 042
     Dates: start: 20041115, end: 20041115
  11. GADOLINIUM (UNSPECIFIED) [Suspect]
     Route: 042
     Dates: start: 20060314, end: 20060314
  12. EPOGEN [Concomitant]
     Indication: PRODUCT USED FOR UNKNOWN INDICATION

REACTIONS (1)
  - Nephrogenic systemic fibrosis [Not Recovered/Not Resolved]
